FAERS Safety Report 25478942 (Version 3)
Quarter: 2025Q3

REPORT INFORMATION
  Report Type: Spontaneous
  Country: US (occurrence: US)
  Receive Date: 20250625
  Receipt Date: 20250805
  Transmission Date: 20251020
  Serious: No
  Sender: ALEXION PHARMACEUTICALS
  Company Number: US-AstraZeneca-CH-00895955AP

PATIENT
  Sex: Female

DRUGS (2)
  1. AIRSUPRA [Suspect]
     Active Substance: ALBUTEROL SULFATE\BUDESONIDE
     Dosage: 90 MICROGRAM, BID
     Dates: start: 20250424
  2. AIRSUPRA [Suspect]
     Active Substance: ALBUTEROL SULFATE\BUDESONIDE
     Route: 065

REACTIONS (7)
  - Drug ineffective [Unknown]
  - Device defective [Unknown]
  - Product dose omission issue [Unknown]
  - Incorrect dosage administered [Unknown]
  - Product complaint [Unknown]
  - Bronchitis [Unknown]
  - Device delivery system issue [Unknown]
